FAERS Safety Report 11723690 (Version 1)
Quarter: 2015Q4

REPORT INFORMATION
  Report Type: Spontaneous
  Country: DE (occurrence: DE)
  Receive Date: 20151111
  Receipt Date: 20151111
  Transmission Date: 20160304
  Serious: Yes (Other)
  Sender: FDA-Public Use
  Company Number: GXKR2015DE004993

PATIENT

DRUGS (1)
  1. LEONA HEXAL [Suspect]
     Active Substance: ETHINYL ESTRADIOL\LEVONORGESTREL
     Indication: CONTRACEPTION
     Dosage: 1 DF, QD
     Route: 048
     Dates: start: 20151002

REACTIONS (10)
  - Clumsiness [None]
  - Migraine [Recovered/Resolved]
  - Loss of libido [Recovered/Resolved]
  - Haematoma [None]
  - Weight increased [Recovered/Resolved]
  - Oedema [Recovered/Resolved]
  - Headache [Recovered/Resolved]
  - Thrombosis [Recovered/Resolved]
  - Contusion [Recovered/Resolved]
  - Hunger [None]

NARRATIVE: CASE EVENT DATE: 20151007
